FAERS Safety Report 10665323 (Version 3)
Quarter: 2015Q1

REPORT INFORMATION
  Report Type: Report from Study
  Country: IN (occurrence: IN)
  Receive Date: 20141219
  Receipt Date: 20150112
  Transmission Date: 20150720
  Serious: Yes (Other)
  Sender: FDA-Public Use
  Company Number: IN-BAYER-2014-182627

PATIENT
  Age: 55 Year
  Sex: Male

DRUGS (3)
  1. NEXAVAR [Suspect]
     Active Substance: SORAFENIB
     Indication: RENAL CELL CARCINOMA
     Dosage: DAILY DOSE 800 MG
     Dates: start: 2012, end: 201407
  2. NEXAVAR [Suspect]
     Active Substance: SORAFENIB
     Indication: RENAL CELL CARCINOMA
     Dosage: DAILY DOSE 800 MG
     Dates: start: 2014
  3. THYROXIN [Concomitant]
     Active Substance: LEVOTHYROXINE
     Indication: THYROID DISORDER
     Dosage: 75 MCG IN MORNING

REACTIONS (2)
  - Gait disturbance [Recovered/Resolved]
  - Skin disorder [Recovering/Resolving]

NARRATIVE: CASE EVENT DATE: 201405
